FAERS Safety Report 24730325 (Version 1)
Quarter: 2024Q4

REPORT INFORMATION
  Report Type: Spontaneous
  Country: DE (occurrence: DE)
  Receive Date: 20241213
  Receipt Date: 20241213
  Transmission Date: 20250115
  Serious: Yes (Death, Hospitalization, Other)
  Sender: AUROBINDO
  Company Number: DE-AstraZeneca-2023A046968

PATIENT
  Age: 84 Year
  Sex: Female
  Weight: 91 kg

DRUGS (14)
  1. FULVESTRANT [Suspect]
     Active Substance: FULVESTRANT
     Indication: Breast cancer
     Dosage: 500 MILLIGRAM, ONCE A DAY (
     Route: 030
     Dates: start: 20211006, end: 20220518
  2. EXEMESTANE [Suspect]
     Active Substance: EXEMESTANE
     Indication: Breast cancer
     Dosage: 25 MILLIGRAM, ONCE A DAY
     Route: 048
     Dates: start: 20220615, end: 20221213
  3. PALBOCICLIB [Suspect]
     Active Substance: PALBOCICLIB
     Indication: Breast cancer
     Dosage: 125 MILLIGRAM, ONCE A DAY (CYCLIC (125 MG, DAILY FROM DAY 1 TO DAY 21 EVERY 28-DAY CYCLE))
     Route: 048
     Dates: start: 20211007, end: 20221213
  4. RAMIPRIL [Concomitant]
     Active Substance: RAMIPRIL
     Indication: Hypertension
     Dosage: UNK
     Route: 048
     Dates: start: 20210927
  5. HYDROCHLOROTHIAZIDE\RAMIPRIL [Concomitant]
     Active Substance: HYDROCHLOROTHIAZIDE\RAMIPRIL
     Indication: Hypertension
     Dosage: UNK
     Route: 048
     Dates: start: 20210927
  6. ATORVASTATIN [Concomitant]
     Active Substance: ATORVASTATIN
     Indication: Prophylaxis
     Dosage: UNK
     Route: 048
     Dates: start: 20210927
  7. FELODIPINE [Concomitant]
     Active Substance: FELODIPINE
     Indication: Hypertension
     Dosage: UNK
     Route: 048
     Dates: start: 20210927
  8. LEVOTHYROXINE [Concomitant]
     Active Substance: LEVOTHYROXINE
     Indication: Hypothyroidism
     Dosage: UNK
     Route: 048
     Dates: start: 20210927
  9. METOPROLOL [Concomitant]
     Active Substance: METOPROLOL
     Indication: Coronary artery disease
     Dosage: UNK
     Route: 048
     Dates: start: 20210927
  10. CALCIUM\CHOLECALCIFEROL [Concomitant]
     Active Substance: CALCIUM\CHOLECALCIFEROL
     Indication: Prophylaxis
     Dosage: UNK
     Route: 048
     Dates: start: 20210927
  11. INNOHEP [Concomitant]
     Active Substance: TINZAPARIN SODIUM
     Indication: Prophylaxis
     Dosage: UNK
     Route: 058
     Dates: start: 20210927
  12. Novalgin [Concomitant]
     Indication: Prophylaxis
     Dosage: UNK
     Route: 048
     Dates: start: 20211001
  13. IBUPROFEN [Concomitant]
     Active Substance: IBUPROFEN
     Indication: Prophylaxis
     Dosage: UNK
     Route: 048
     Dates: start: 20211001
  14. NALOXONE HYDROCHLORIDE\OXYCODONE HYDROCHLORIDE [Concomitant]
     Active Substance: NALOXONE HYDROCHLORIDE\OXYCODONE HYDROCHLORIDE
     Indication: Prophylaxis
     Dosage: UNK
     Route: 048
     Dates: start: 20211006

REACTIONS (6)
  - Acute respiratory distress syndrome [Fatal]
  - Panic attack [Not Recovered/Not Resolved]
  - Tachycardia [Unknown]
  - Hyperventilation [Unknown]
  - Fear [Unknown]
  - Anxiety [Unknown]

NARRATIVE: CASE EVENT DATE: 20221129
